FAERS Safety Report 4319864-5 (Version None)
Quarter: 2004Q1

REPORT INFORMATION
  Report Type: 
  Country: None (occurrence: None)
  Receive Date: 20040316
  Receipt Date: 20040304
  Transmission Date: 20041129
  Serious: Yes (Hospitalization)
  Sender: FDA-Public Use
  Company Number: US068581

PATIENT
  Age: 15 Year
  Sex: Female

DRUGS (2)
  1. ETANERCEPT [Suspect]
     Indication: JUVENILE ARTHRITIS
     Dosage: 0.4 MG/KG, 2 IN 1 WEEKS, SC
     Route: 058
     Dates: start: 19990601
  2. METHOTREXATE [Concomitant]

REACTIONS (13)
  - ALANINE AMINOTRANSFERASE INCREASED [None]
  - ASPARTATE AMINOTRANSFERASE INCREASED [None]
  - BLOOD ALKALINE PHOSPHATASE INCREASED [None]
  - COAGULOPATHY [None]
  - EPSTEIN-BARR VIRUS INFECTION [None]
  - ERYTHROPHAGOCYTOSIS [None]
  - HISTIOCYTOSIS HAEMATOPHAGIC [None]
  - INTERNATIONAL NORMALISED RATIO INCREASED [None]
  - PANCYTOPENIA [None]
  - PROTHROMBIN TIME PROLONGED [None]
  - RED BLOOD CELL SEDIMENTATION RATE INCREASED [None]
  - SEPSIS [None]
  - SPLENOMEGALY [None]
